FAERS Safety Report 5506304-3 (Version None)
Quarter: 2007Q4

REPORT INFORMATION
  Report Type: 
  Country: None (occurrence: None)
  Receive Date: 20071102
  Receipt Date: 20071102
  Transmission Date: 20080405
  Serious: Yes (Hospitalization)
  Sender: FDA-Public Use
  Company Number: None

PATIENT
  Sex: Female
  Weight: 44.4 kg

DRUGS (5)
  1. CYTARABINE [Suspect]
     Dosage: 70 MG
  2. DEXAMETHASONE [Suspect]
     Dosage: 104 MG
  3. METHOTREXATE [Suspect]
     Dosage: 12 MG
  4. PEG-L-ASPARAGINASE (K-H) [Suspect]
     Dosage: 3500 UNIT
  5. VINCRISTINE SULFATE [Suspect]
     Dosage: 8 MG

REACTIONS (3)
  - BLADDER DISTENSION [None]
  - BLADDER PERFORATION [None]
  - FLATULENCE [None]
